FAERS Safety Report 20245884 (Version 9)
Quarter: 2022Q2

REPORT INFORMATION
  Report Type: Spontaneous
  Country: JP (occurrence: JP)
  Receive Date: 20211229
  Receipt Date: 20220407
  Transmission Date: 20220721
  Serious: Yes (Other)
  Sender: FDA-Public Use
  Company Number: JP-AMGEN-JPNSP2021204165

PATIENT
  Age: 74 Year
  Sex: Female

DRUGS (5)
  1. BLINCYTO [Suspect]
     Active Substance: BLINATUMOMAB
     Indication: Acute lymphocytic leukaemia
     Dosage: 5 MICROGRAM/SQ.METER/KILOGRAM
     Route: 041
     Dates: start: 20211220, end: 20211221
  2. BLINCYTO [Suspect]
     Active Substance: BLINATUMOMAB
     Dosage: 2.5 MICROGRAM/SQ.METER/KILOGRAM
     Route: 041
     Dates: start: 20211224, end: 2021
  3. BLINCYTO [Suspect]
     Active Substance: BLINATUMOMAB
     Dosage: 15 MICROGRAM
     Route: 041
     Dates: start: 20211228, end: 20220116
  4. BLINCYTO [Suspect]
     Active Substance: BLINATUMOMAB
     Dosage: 15 MICROGRAM
     Route: 041
     Dates: start: 20220131, end: 20220228
  5. BLINCYTO [Suspect]
     Active Substance: BLINATUMOMAB
     Dosage: 15 MICROGRAM, QD
     Route: 041
     Dates: start: 20220314

REACTIONS (4)
  - Urinary retention [Recovered/Resolved]
  - Compression fracture [Recovering/Resolving]
  - Pyrexia [Recovered/Resolved]
  - Vertigo [Recovered/Resolved]

NARRATIVE: CASE EVENT DATE: 20211221
